FAERS Safety Report 5542806-1 (Version None)
Quarter: 2007Q4

REPORT INFORMATION
  Report Type: 
  Country: None (occurrence: None)
  Receive Date: 20071210
  Receipt Date: 20071129
  Transmission Date: 20080405
  Serious: Yes (Death)
  Sender: FDA-Public Use
  Company Number: US-PFIZER INC-2007066708

PATIENT
  Sex: Male

DRUGS (3)
  1. SU-011,248 [Suspect]
     Indication: MESOTHELIOMA
     Route: 048
     Dates: start: 20070607, end: 20070626
  2. SU-011,248 [Suspect]
     Route: 048
     Dates: start: 20070705, end: 20070713
  3. GEMCITABINE [Suspect]
     Indication: MESOTHELIOMA
     Route: 042
     Dates: start: 20070606, end: 20070705

REACTIONS (2)
  - DISEASE PROGRESSION [None]
  - MESOTHELIOMA [None]
